FAERS Safety Report 15624788 (Version 1)
Quarter: 2018Q4

REPORT INFORMATION
  Report Type: Spontaneous
  Country: US (occurrence: US)
  Receive Date: 20181116
  Receipt Date: 20181116
  Transmission Date: 20190205
  Serious: Yes (Other)
  Sender: FDA-Public Use
  Company Number: PHHY2018US149233

PATIENT
  Age: 45 Year
  Sex: Male

DRUGS (1)
  1. AMOXICILLIN + CLAVULANATE POTASSIUM [Suspect]
     Active Substance: AMOXICILLIN\CLAVULANATE POTASSIUM
     Indication: SINUSITIS
     Dosage: UNK
     Route: 065

REACTIONS (10)
  - Thrombocytopenia [Unknown]
  - Type IIa hyperlipidaemia [Unknown]
  - Hepatic steatosis [Unknown]
  - Transaminases increased [Unknown]
  - Blood immunoglobulin A increased [Unknown]
  - Hyperbilirubinaemia [Unknown]
  - Hepatomegaly [Unknown]
  - Drug-induced liver injury [Unknown]
  - Anaemia [Unknown]
  - Dyslipidaemia [Unknown]
